FAERS Safety Report 5479976-X (Version None)
Quarter: 2007Q4

REPORT INFORMATION
  Report Type: 
  Country: None (occurrence: None)
  Receive Date: 20071008
  Receipt Date: 20071003
  Transmission Date: 20080405
  Serious: Yes (Other)
  Sender: FDA-Public Use
  Company Number: US-MERCK-0704USA06053

PATIENT
  Age: 60 Year
  Sex: Female
  Weight: 53 kg

DRUGS (2)
  1. ZETIA [Suspect]
     Indication: BLOOD CHOLESTEROL
     Route: 048
     Dates: start: 20040301, end: 20040301
  2. ZETIA [Suspect]
     Route: 048
     Dates: start: 20040301, end: 20050301

REACTIONS (4)
  - AMYOTROPHIC LATERAL SCLEROSIS [None]
  - DRUG ADMINISTRATION ERROR [None]
  - MYALGIA [None]
  - UNDERDOSE [None]
